FAERS Safety Report 14306347 (Version 1)
Quarter: 2017Q4

REPORT INFORMATION
  Report Type: Report from Study
  Country: None (occurrence: PR)
  Receive Date: 20171219
  Receipt Date: 20171219
  Transmission Date: 20180321
  Serious: Yes (Other)
  Sender: FDA-Public Use
  Company Number: PR-ABBVIE-17S-131-2193680-00

PATIENT
  Age: 46 Year
  Sex: Female

DRUGS (1)
  1. LUPRON [Suspect]
     Active Substance: LEUPROLIDE ACETATE
     Indication: ENDOMETRIOSIS
     Route: 050
     Dates: start: 2011

REACTIONS (6)
  - General physical condition abnormal [Recovered/Resolved with Sequelae]
  - Mood altered [Recovered/Resolved with Sequelae]
  - Hot flush [Recovered/Resolved with Sequelae]
  - Surgery [Unknown]
  - Adverse reaction [Unknown]
  - Hair disorder [Recovered/Resolved with Sequelae]

NARRATIVE: CASE EVENT DATE: 2011
